FAERS Safety Report 14578926 (Version 1)
Quarter: 2018Q1

REPORT INFORMATION
  Report Type: Spontaneous
  Country: US (occurrence: US)
  Receive Date: 20180227
  Receipt Date: 20180227
  Transmission Date: 20180509
  Serious: No
  Sender: FDA-Public Use
  Company Number: US-PERRIGO-17US031704

PATIENT
  Age: 78 Year
  Sex: Female
  Weight: 61.22 kg

DRUGS (3)
  1. SALSALATE. [Concomitant]
     Active Substance: SALSALATE
     Indication: FIBROMYALGIA
     Dosage: UNK
     Route: 048
  2. NAPROXEN SODIUM. [Suspect]
     Active Substance: NAPROXEN SODIUM
     Indication: PAIN
     Dosage: 220 MG, SINGLE
     Route: 048
     Dates: start: 20171218, end: 20171218
  3. MUSCLE RELAXANTS [Concomitant]
     Active Substance: UNSPECIFIED INGREDIENT
     Indication: FIBROMYALGIA
     Dosage: UNK
     Route: 065

REACTIONS (5)
  - Foreign body in respiratory tract [Recovered/Resolved]
  - Oropharyngeal pain [Not Recovered/Not Resolved]
  - Dysphonia [Not Recovered/Not Resolved]
  - Dysphagia [Not Recovered/Not Resolved]
  - Throat irritation [Recovered/Resolved]

NARRATIVE: CASE EVENT DATE: 20171218
